FAERS Safety Report 15293883 (Version 1)
Quarter: 2018Q3

REPORT INFORMATION
  Report Type: Spontaneous
  Country: US (occurrence: US)
  Receive Date: 20180807
  Receipt Date: 20180807
  Transmission Date: 20181010
  Serious: Yes (Death)
  Sender: FDA-Public Use
  Company Number: None

PATIENT
  Age: 56 Year
  Sex: Female

DRUGS (1)
  1. VELCADE [Suspect]
     Active Substance: BORTEZOMIB
     Indication: CHRONIC KIDNEY DISEASE
     Route: 058
     Dates: start: 20180323

REACTIONS (1)
  - Death [None]

NARRATIVE: CASE EVENT DATE: 20180807
